FAERS Safety Report 17243319 (Version 1)
Quarter: 2020Q1

REPORT INFORMATION
  Report Type: Spontaneous
  Country: DE (occurrence: DE)
  Receive Date: 20200107
  Receipt Date: 20200107
  Transmission Date: 20200409
  Serious: Yes (Death)
  Sender: FDA-Public Use
  Company Number: DE-CELGENEUS-DEU-20200101452

PATIENT
  Sex: Male

DRUGS (15)
  1. OXALIPLATIN. [Concomitant]
     Active Substance: OXALIPLATIN
     Indication: DIFFUSE LARGE B-CELL LYMPHOMA
     Dosage: R-DHAOX
     Route: 065
     Dates: start: 20190323
  2. METHOTREXATE. [Concomitant]
     Active Substance: METHOTREXATE
     Indication: DIFFUSE LARGE B-CELL LYMPHOMA
     Dosage: 1ST LINE, R-CHOEP
     Route: 065
     Dates: start: 20180815
  3. BENDAMUSTINE [Concomitant]
     Active Substance: BENDAMUSTINE
     Route: 065
     Dates: start: 20190607
  4. BENDAMUSTINE [Concomitant]
     Active Substance: BENDAMUSTINE
     Indication: DIFFUSE LARGE B-CELL LYMPHOMA
     Dosage: 1ST LINE, R-CHOEP
     Route: 065
     Dates: start: 20180815
  5. BENDAMUSTINE [Concomitant]
     Active Substance: BENDAMUSTINE
     Route: 065
     Dates: start: 20190507
  6. RITUXAN [Concomitant]
     Active Substance: RITUXIMAB
     Dosage: R-DHAOX (2ND LINE)
     Route: 065
     Dates: start: 20190323
  7. DEXAMETHASONE. [Concomitant]
     Active Substance: DEXAMETHASONE
     Indication: DIFFUSE LARGE B-CELL LYMPHOMA
     Dosage: R-CHOEP
     Route: 048
     Dates: start: 20180815
  8. CYTARABINE. [Concomitant]
     Active Substance: CYTARABINE
     Indication: DIFFUSE LARGE B-CELL LYMPHOMA
     Dosage: R-DHAOX
     Route: 065
     Dates: start: 20190323
  9. THALIDOMIDE [Suspect]
     Active Substance: THALIDOMIDE
     Indication: DIFFUSE LARGE B-CELL LYMPHOMA
     Dosage: 1ST LINE, R-CHOEP
     Route: 048
     Dates: start: 20180815
  10. DEXAMETHASONE. [Concomitant]
     Active Substance: DEXAMETHASONE
     Dosage: R-DHAOX
     Route: 048
     Dates: start: 20190323
  11. RITUXAN [Concomitant]
     Active Substance: RITUXIMAB
     Indication: DIFFUSE LARGE B-CELL LYMPHOMA
     Dosage: R-CHOEP (1ST LINE)
     Route: 065
     Dates: start: 20180815
  12. RITUXAN [Concomitant]
     Active Substance: RITUXIMAB
     Dosage: R-BENDAMSUTIN-MITOXANTRONE
     Route: 065
     Dates: start: 20190507
  13. MITOXANTRONE [Concomitant]
     Active Substance: MITOXANTRONE HYDROCHLORIDE
     Indication: DIFFUSE LARGE B-CELL LYMPHOMA
     Route: 065
     Dates: start: 20190607
  14. RITUXAN [Concomitant]
     Active Substance: RITUXIMAB
     Dosage: FURTHER LINE, R-BENDAMUSTIN-MITOXANTRONE
     Route: 065
     Dates: start: 20190607
  15. R CHOP [Concomitant]
     Active Substance: CYCLOPHOSPHAMIDE\DOXORUBICIN\PREDNISONE\RITUXIMAB\VINCRISTINE
     Indication: DIFFUSE LARGE B-CELL LYMPHOMA
     Route: 065
     Dates: start: 20180815

REACTIONS (6)
  - Blood creatinine increased [Unknown]
  - Neutrophil count decreased [Unknown]
  - Death [Fatal]
  - Blood bilirubin decreased [Unknown]
  - Aspartate aminotransferase increased [Unknown]
  - Platelet count decreased [Unknown]
